FAERS Safety Report 11438384 (Version 1)
Quarter: 2015Q3

REPORT INFORMATION
  Report Type: Spontaneous
  Country: US (occurrence: US)
  Receive Date: 20150901
  Receipt Date: 20150901
  Transmission Date: 20151125
  Serious: No
  Sender: FDA-Public Use
  Company Number: US-ROCHE-1109851

PATIENT
  Sex: Male

DRUGS (2)
  1. PEGASYS [Suspect]
     Active Substance: PEGINTERFERON ALFA-2A
     Indication: HEPATITIS C
     Route: 058
     Dates: start: 20120505
  2. RIBAVIRIN. [Suspect]
     Active Substance: RIBAVIRIN
     Indication: HEPATITIS C
     Route: 065
     Dates: start: 20120505

REACTIONS (9)
  - Fatigue [Unknown]
  - Skin ulcer [Unknown]
  - Mood swings [Unknown]
  - Irritability [Unknown]
  - Blister [Unknown]
  - Pruritus [Unknown]
  - Muscle atrophy [Unknown]
  - Depression [Unknown]
  - Weight decreased [Unknown]
